FAERS Safety Report 6576476-0 (Version None)
Quarter: 2010Q1

REPORT INFORMATION
  Report Type: 
  Country: None (occurrence: None)
  Receive Date: 20100210
  Receipt Date: 20100106
  Transmission Date: 20100710
  Serious: No
  Sender: FDA-Public Use
  Company Number: A0838492A

PATIENT
  Age: 10 Month
  Sex: Female

DRUGS (1)
  1. ALTABAX [Suspect]
     Indication: RASH
     Dosage: 1APP AS DIRECTED
     Route: 061

REACTIONS (2)
  - BURNING SENSATION [None]
  - ILL-DEFINED DISORDER [None]
